FAERS Safety Report 13212981 (Version 1)
Quarter: 2017Q1

REPORT INFORMATION
  Report Type: Spontaneous
  Country: US (occurrence: US)
  Receive Date: 20170210
  Receipt Date: 20170210
  Transmission Date: 20170428
  Serious: Yes (Other)
  Sender: FDA-Public Use
  Company Number: PHEH2017US003687

PATIENT
  Sex: Male
  Weight: 102.4 kg

DRUGS (20)
  1. PALBOCICLIB [Suspect]
     Active Substance: PALBOCICLIB
     Indication: MALIGNANT NIPPLE NEOPLASM MALE
     Dosage: 1 DF, QD (FOR 21 DAYS THEN 7 DAYS )
     Route: 065
  2. XGEVA [Suspect]
     Active Substance: DENOSUMAB
     Indication: MALIGNANT NIPPLE NEOPLASM MALE
     Dosage: 120 MG, Q 28 D X12
     Route: 065
     Dates: start: 20150701, end: 20160518
  3. LISINOPRIL. [Concomitant]
     Active Substance: LISINOPRIL
     Indication: PRODUCT USED FOR UNKNOWN INDICATION
     Dosage: 5 MG, UNK
     Route: 065
  4. ZOMETA [Suspect]
     Active Substance: ZOLEDRONIC ACID
     Indication: BREAST CANCER MALE
     Dosage: 4 MG, Q 28 D X12
     Route: 065
     Dates: start: 20150603, end: 20150603
  5. NEURONTIN [Suspect]
     Active Substance: GABAPENTIN
     Indication: PRODUCT USED FOR UNKNOWN INDICATION
     Dosage: 300 MG, UNK
     Route: 065
  6. LUPRON [Suspect]
     Active Substance: LEUPROLIDE ACETATE
     Indication: MALIGNANT NIPPLE NEOPLASM MALE
     Dosage: 22.5 MG, Q3MO (Q 3 MONTHS X 4)
     Route: 065
     Dates: start: 20160615
  7. FASLODEX [Suspect]
     Active Substance: FULVESTRANT
     Indication: MALIGNANT NIPPLE NEOPLASM MALE
     Dosage: 500 MG,  D1 - D15 CYCLE 1 D1 Q 28 DAYS FOR 6 MONTHS
     Route: 030
     Dates: start: 20160920
  8. VITAMIN D3 [Concomitant]
     Active Substance: CHOLECALCIFEROL
     Indication: PRODUCT USED FOR UNKNOWN INDICATION
     Dosage: 2000 U, UNK
     Route: 065
  9. CITRACAL + D [Concomitant]
     Active Substance: CALCIUM CITRATE\VITAMIN D
     Indication: PRODUCT USED FOR UNKNOWN INDICATION
     Dosage: 250 U, UNK
     Route: 065
  10. CRESTOR [Concomitant]
     Active Substance: ROSUVASTATIN CALCIUM
     Indication: PRODUCT USED FOR UNKNOWN INDICATION
     Dosage: 6 MG, UNK
     Route: 065
  11. FLAXSEED [Concomitant]
     Active Substance: FLAX SEED
     Indication: PRODUCT USED FOR UNKNOWN INDICATION
     Route: 048
  12. PALBOCICLIB [Suspect]
     Active Substance: PALBOCICLIB
     Dosage: 125 MG, Q 28 DAYS X 6 MONTHS
     Route: 048
     Dates: start: 20151123, end: 20160428
  13. FEMARA [Suspect]
     Active Substance: LETROZOLE
     Indication: BREAST CANCER METASTATIC
     Dosage: 2.5 MG, QD
     Route: 048
     Dates: start: 20151123, end: 20160428
  14. AFINITOR [Suspect]
     Active Substance: EVEROLIMUS
     Indication: BREAST CANCER METASTATIC
     Dosage: 10 MG, QD (FOR 5 MONTHS)
     Route: 048
     Dates: start: 20141217, end: 20150520
  15. XELODA [Suspect]
     Active Substance: CAPECITABINE
     Indication: MALIGNANT NIPPLE NEOPLASM MALE
     Dosage: 1250 MG/M2, BID (4/5) CYCLE ACTION PLAN
     Route: 048
     Dates: start: 20140901, end: 20141222
  16. GABAPENTIN. [Concomitant]
     Active Substance: GABAPENTIN
     Indication: PRODUCT USED FOR UNKNOWN INDICATION
     Dosage: 300 MG, UNK
     Route: 065
  17. AROMASIN [Suspect]
     Active Substance: EXEMESTANE
     Indication: MALIGNANT NIPPLE NEOPLASM MALE
     Dosage: 25 MG, UNK
     Route: 048
     Dates: start: 20141217, end: 20150520
  18. ZOMETA [Suspect]
     Active Substance: ZOLEDRONIC ACID
     Indication: METASTASES TO BONE
     Dosage: 4 MG, Q 28D X12
     Route: 065
     Dates: start: 20140129, end: 20150305
  19. PALBOCICLIB [Suspect]
     Active Substance: PALBOCICLIB
     Dosage: 125 MG, D1  D21
     Route: 048
     Dates: start: 20160920
  20. CALCIUM [Concomitant]
     Active Substance: CALCIUM
     Indication: PRODUCT USED FOR UNKNOWN INDICATION
     Dosage: 250 MG, UNK
     Route: 065

REACTIONS (6)
  - Stomatitis [Recovering/Resolving]
  - Breast cancer [Unknown]
  - Malignant neoplasm progression [Unknown]
  - Drug intolerance [Unknown]
  - Neutropenia [Unknown]
  - Leukopenia [Unknown]
